FAERS Safety Report 4411112-0 (Version None)
Quarter: 2004Q3

REPORT INFORMATION
  Report Type: 
  Country: None (occurrence: None)
  Receive Date: 20040726
  Receipt Date: 20040709
  Transmission Date: 20050211
  Serious: No
  Sender: FDA-Public Use
  Company Number: 199755

PATIENT
  Sex: Female

DRUGS (1)
  1. AVONEX [Suspect]
     Indication: MULTIPLE SCLEROSIS
     Dates: start: 19990401

REACTIONS (12)
  - DEPRESSION [None]
  - DIFFICULTY IN WALKING [None]
  - FATIGUE [None]
  - GAIT DISTURBANCE [None]
  - HYPOKINESIA [None]
  - LIPOMA [None]
  - LYMPHATIC SYSTEM NEOPLASM [None]
  - LYMPHOEDEMA [None]
  - MENTAL DISORDER [None]
  - PAIN IN EXTREMITY [None]
  - SPEECH DISORDER [None]
  - VISUAL ACUITY REDUCED [None]
